FAERS Safety Report 10201206 (Version 2)
Quarter: 2014Q2

REPORT INFORMATION
  Report Type: Spontaneous
  Country: CN (occurrence: CN)
  Receive Date: 20140528
  Receipt Date: 20140528
  Transmission Date: 20141212
  Serious: Yes (Other)
  Sender: FDA-Public Use
  Company Number: CN-PFIZER INC-2014145845

PATIENT
  Sex: Female

DRUGS (1)
  1. CORDARONE [Suspect]
     Indication: ATRIAL FIBRILLATION
     Dosage: 200 MG, DAILY
     Route: 048
     Dates: start: 20121105, end: 20130115

REACTIONS (7)
  - Hypothyroidism [Recovering/Resolving]
  - Chest pain [Recovering/Resolving]
  - Chest discomfort [Recovering/Resolving]
  - Dyspnoea [Recovering/Resolving]
  - Oedema peripheral [Recovering/Resolving]
  - Decreased appetite [Recovering/Resolving]
  - Back disorder [Recovering/Resolving]
